FAERS Safety Report 19020783 (Version 1)
Quarter: 2021Q1

REPORT INFORMATION
  Report Type: Spontaneous
  Country: FR (occurrence: FR)
  Receive Date: 20210317
  Receipt Date: 20210317
  Transmission Date: 20210420
  Serious: Yes (Hospitalization)
  Sender: FDA-Public Use
  Company Number: FR-TEVA-2021-FR-1889511

PATIENT
  Age: 22 Year
  Sex: Male
  Weight: 106 kg

DRUGS (11)
  1. CYTARABINE. [Concomitant]
     Active Substance: CYTARABINE
  2. MERCAPTOPURINE. [Concomitant]
     Active Substance: MERCAPTOPURINE
  3. METHOTREXATE. [Suspect]
     Active Substance: METHOTREXATE
     Dosage: 10900 MG
     Route: 041
     Dates: start: 20210111, end: 20210111
  4. PRIMPERAN [Concomitant]
     Active Substance: METOCLOPRAMIDE HYDROCHLORIDE
  5. DEPO?MEDROL [Concomitant]
     Active Substance: METHYLPREDNISOLONE ACETATE
  6. VALACICLOVIR [Concomitant]
     Active Substance: VALACYCLOVIR HYDROCHLORIDE
  7. METHOTREXATE. [Suspect]
     Active Substance: METHOTREXATE
     Indication: PRECURSOR T-LYMPHOBLASTIC LYMPHOMA/LEUKAEMIA
     Dosage: 15 MG
     Route: 024
     Dates: start: 20210112, end: 20210112
  8. DOLIPRANE [Concomitant]
     Active Substance: ACETAMINOPHEN
  9. VINCRISTINE HOSPIRA [Concomitant]
     Active Substance: VINCRISTINE
  10. FOLINATE DE CALCIUM ZENTIVA [Concomitant]
     Active Substance: LEUCOVORIN CALCIUM
  11. WELLVONE [Concomitant]
     Active Substance: ATOVAQUONE

REACTIONS (3)
  - Accidental overdose [Recovered/Resolved]
  - Acute kidney injury [Recovered/Resolved]
  - Drug level increased [Recovered/Resolved]

NARRATIVE: CASE EVENT DATE: 20210113
